FAERS Safety Report 5728701-3 (Version None)
Quarter: 2008Q2

REPORT INFORMATION
  Report Type: 
  Country: None (occurrence: None)
  Receive Date: 20080430
  Receipt Date: 20080115
  Transmission Date: 20081010
  Serious: No
  Sender: FDA-Public Use
  Company Number: 2008PV033954

PATIENT
  Age: 72 Year
  Sex: Female

DRUGS (5)
  1. SYMLIN [Suspect]
     Indication: TYPE 2 DIABETES MELLITUS
     Dosage: 120 MCG;BID;SC, 60 MCG;BID;SC, 120 MCG;BID;SC
     Route: 058
     Dates: start: 20071201, end: 20070101
  2. SYMLIN [Suspect]
     Indication: TYPE 2 DIABETES MELLITUS
     Dosage: 120 MCG;BID;SC, 60 MCG;BID;SC, 120 MCG;BID;SC
     Route: 058
     Dates: start: 20070101, end: 20080101
  3. SYMLIN [Suspect]
     Indication: TYPE 2 DIABETES MELLITUS
     Dosage: 120 MCG;BID;SC, 60 MCG;BID;SC, 120 MCG;BID;SC
     Route: 058
     Dates: start: 20080101
  4. NOVOLOG [Concomitant]
  5. INSULIN DETEMIR [Concomitant]

REACTIONS (3)
  - INJECTION SITE BRUISING [None]
  - INJECTION SITE HAEMORRHAGE [None]
  - INJECTION SITE PAIN [None]
